FAERS Safety Report 20339660 (Version 1)
Quarter: 2022Q1

REPORT INFORMATION
  Report Type: Spontaneous
  Country: US (occurrence: US)
  Receive Date: 20220117
  Receipt Date: 20220117
  Transmission Date: 20220423
  Serious: No
  Sender: FDA-Public Use
  Company Number: US-AMGEN-USASP2022006128

PATIENT
  Sex: Female

DRUGS (6)
  1. ENBREL [Suspect]
     Active Substance: ETANERCEPT
     Indication: Immunisation
     Dosage: 50 MILLIGRAM, QWK
     Route: 058
     Dates: start: 20100610
  2. ENBREL [Suspect]
     Active Substance: ETANERCEPT
     Indication: Off label use
  3. ATORVASTATIN CALCIUM [Concomitant]
     Active Substance: ATORVASTATIN CALCIUM
     Dosage: UNK
  4. SULFAMETHOXAZOLE\TRIMETHOPRIM [Concomitant]
     Active Substance: SULFAMETHOXAZOLE\TRIMETHOPRIM
     Dosage: UNK
  5. VITAMIN D NOS [Concomitant]
     Active Substance: VITAMIN D NOS
     Dosage: 1000 UNIT, 50000 UNIT
  6. PILOCARPINE HYDROCHLORIDE [Concomitant]
     Active Substance: PILOCARPINE HYDROCHLORIDE
     Dosage: UNK

REACTIONS (3)
  - Hypersensitivity [Unknown]
  - Illness [Unknown]
  - Off label use [Unknown]
